FAERS Safety Report 11230192 (Version 1)
Quarter: 2015Q2

REPORT INFORMATION
  Report Type: Spontaneous
  Country: US (occurrence: None)
  Receive Date: 20150630
  Receipt Date: 20150630
  Transmission Date: 20150821
  Serious: Yes (Disabling, Other)
  Sender: FDA-Public Use
  Company Number: None

PATIENT
  Age: 33 Year
  Sex: Female
  Weight: 79.83 kg

DRUGS (6)
  1. MULTI VITAMIN [Concomitant]
     Active Substance: VITAMINS
  2. VITAMIN B12 [Concomitant]
     Active Substance: CYANOCOBALAMIN
  3. IBUPROFEN. [Concomitant]
     Active Substance: IBUPROFEN
  4. ALBUTEROL (PROVENTIL) [Concomitant]
  5. DEXTROAMP-AMPHET ER 20 MG GLOBAL PHARM [Suspect]
     Active Substance: AMPHETAMINE SULFATE\DEXTROAMPHETAMINE
     Indication: ATTENTION DEFICIT/HYPERACTIVITY DISORDER
     Route: 048
     Dates: start: 20150529, end: 20150626
  6. POTASSIUM [Concomitant]
     Active Substance: POTASSIUM

REACTIONS (12)
  - Headache [None]
  - Therapeutic response decreased [None]
  - Anger [None]
  - Thinking abnormal [None]
  - Obsessive-compulsive disorder [None]
  - Irritability [None]
  - Feeling abnormal [None]
  - Anxiety [None]
  - Mood swings [None]
  - Insomnia [None]
  - Abnormal behaviour [None]
  - Suicidal ideation [None]

NARRATIVE: CASE EVENT DATE: 20150529
